FAERS Safety Report 13045971 (Version 1)
Quarter: 2016Q4

REPORT INFORMATION
  Report Type: Spontaneous
  Country: GB (occurrence: GB)
  Receive Date: 20161220
  Receipt Date: 20161220
  Transmission Date: 20170207
  Serious: Yes (Hospitalization, Other)
  Sender: FDA-Public Use
  Company Number: GB-PFIZER INC-2016584245

PATIENT
  Age: 81 Year
  Sex: Female
  Weight: 38 kg

DRUGS (1)
  1. GENTAMICIN SULFATE. [Suspect]
     Active Substance: GENTAMICIN SULFATE
     Indication: UROSEPSIS
     Dosage: 180 MG, GIVEN STAT DOSE AND CORRECTLY DOSED BASEDON WEIGHT.
     Route: 042
     Dates: start: 20161128, end: 20161202

REACTIONS (1)
  - Acute kidney injury [Not Recovered/Not Resolved]

NARRATIVE: CASE EVENT DATE: 20161202
